FAERS Safety Report 7801324-8 (Version None)
Quarter: 2011Q4

REPORT INFORMATION
  Report Type: 
  Country: None (occurrence: None)
  Receive Date: 20111006
  Receipt Date: 20111006
  Transmission Date: 20120403
  Serious: Yes (Hospitalization)
  Sender: FDA-Public Use
  Company Number: None

PATIENT
  Age: 52 Year
  Sex: Female
  Weight: 205.4 kg

DRUGS (19)
  1. VIT C [Concomitant]
  2. POTASSIUM CHLORIDE [Concomitant]
  3. DUONEB [Concomitant]
  4. HUMALOG [Concomitant]
  5. ADVAIR DISKUS 100/50 [Concomitant]
  6. BUMEX [Concomitant]
  7. COLACE [Concomitant]
  8. NITROGLYCERIN [Concomitant]
  9. ZOFRAN [Concomitant]
  10. LANTUS [Concomitant]
  11. LISINOPRIL AND HYDROCHLOROTHIAZIDE [Concomitant]
  12. FENTANYL [Concomitant]
  13. VICODIN [Concomitant]
  14. AMIODARONE HCL [Suspect]
     Indication: ATRIAL FIBRILLATION
     Dosage: 200MG DAILY PO CHRONIC
     Route: 048
  15. VIT D3 [Concomitant]
  16. PRADAXA [Suspect]
     Indication: ATRIAL FIBRILLATION
     Dosage: 150MG BID PO RECENT
     Route: 048
  17. ASPIRIN [Suspect]
     Dosage: CHRONIC
  18. ZOCOR [Concomitant]
  19. PROAIR HFA [Concomitant]

REACTIONS (5)
  - DIVERTICULUM [None]
  - RENAL FAILURE ACUTE [None]
  - COLONIC POLYP [None]
  - HAEMORRHOIDS [None]
  - INTERNATIONAL NORMALISED RATIO DECREASED [None]
